FAERS Safety Report 15607802 (Version 2)
Quarter: 2018Q4

REPORT INFORMATION
  Report Type: Spontaneous
  Country: CH (occurrence: CH)
  Receive Date: 20181112
  Receipt Date: 20181116
  Transmission Date: 20190205
  Serious: Yes (Death, Other)
  Sender: FDA-Public Use
  Company Number: CH-ROCHE-2214198

PATIENT
  Age: 79 Year
  Sex: Female

DRUGS (3)
  1. TECENTRIQ [Suspect]
     Active Substance: ATEZOLIZUMAB
     Route: 042
     Dates: start: 201803
  2. TECENTRIQ [Suspect]
     Active Substance: ATEZOLIZUMAB
     Indication: LUNG NEOPLASM MALIGNANT
     Route: 042
     Dates: start: 201709
  3. AFATINIB [Concomitant]
     Active Substance: AFATINIB
     Indication: LUNG NEOPLASM MALIGNANT
     Route: 065
     Dates: start: 201805

REACTIONS (7)
  - Fatigue [Unknown]
  - Swelling face [Unknown]
  - Swelling [Unknown]
  - Disease progression [Fatal]
  - Somnolence [Unknown]
  - Haemoptysis [Unknown]
  - Hyporeflexia [Unknown]

NARRATIVE: CASE EVENT DATE: 201803
